FAERS Safety Report 6555304-3 (Version None)
Quarter: 2010Q1

REPORT INFORMATION
  Report Type: 
  Country: None (occurrence: None)
  Receive Date: 20100128
  Receipt Date: 20090413
  Transmission Date: 20100710
  Serious: Yes (Other)
  Sender: FDA-Public Use
  Company Number: A0778441A

PATIENT
  Age: 35 Year
  Sex: Female

DRUGS (3)
  1. WELLBUTRIN [Suspect]
     Indication: BIPOLAR II DISORDER
     Route: 048
  2. CELEXA [Concomitant]
  3. THYROID TAB [Concomitant]

REACTIONS (1)
  - MANIA [None]
